FAERS Safety Report 7002950-9 (Version None)
Quarter: 2010Q3

REPORT INFORMATION
  Report Type: 
  Country: None (occurrence: None)
  Receive Date: 20100920
  Receipt Date: 20100909
  Transmission Date: 20110219
  Serious: Yes (Hospitalization)
  Sender: FDA-Public Use
  Company Number: US-ASTRAZENECA-2010SE40097

PATIENT
  Age: 20 Year
  Sex: Female

DRUGS (5)
  1. SEROQUEL [Suspect]
     Route: 048
  2. SEROQUEL [Suspect]
     Dosage: AT LEAST 3000 MILLIGRAMS.
     Route: 048
  3. HEROIN [Suspect]
     Route: 065
  4. BENZODIAZIPANES [Suspect]
     Route: 065
  5. CANNABIS [Suspect]
     Route: 065

REACTIONS (2)
  - FALSE POSITIVE INVESTIGATION RESULT [None]
  - INTENTIONAL OVERDOSE [None]
